FAERS Safety Report 9283768 (Version 1)
Quarter: 2013Q2

REPORT INFORMATION
  Report Type: Spontaneous
  Country: GR (occurrence: IT)
  Receive Date: 20130510
  Receipt Date: 20130510
  Transmission Date: 20140414
  Serious: Yes (Other)
  Sender: FDA-Public Use
  Company Number: IT-PFIZER INC-2012188149

PATIENT
  Age: 55 Year
  Sex: Female

DRUGS (2)
  1. OXALIPLATIN [Suspect]
     Indication: COLORECTAL CANCER METASTATIC
     Dosage: UNK
     Route: 042
  2. CAPECITABINE [Interacting]
     Indication: COLORECTAL CANCER METASTATIC
     Dosage: 1650 MG, CYCLIC 2/DAY 14 DAYS
     Route: 048

REACTIONS (3)
  - Cardiotoxicity [Recovered/Resolved]
  - Neuropathy peripheral [Recovered/Resolved]
  - Drug interaction [Recovering/Resolving]
